FAERS Safety Report 9986863 (Version 3)
Quarter: 2014Q1

REPORT INFORMATION
  Report Type: Report from Study
  Country: US (occurrence: US)
  Receive Date: 20140307
  Receipt Date: 20140328
  Transmission Date: 20141002
  Serious: Yes (Disabling)
  Sender: FDA-Public Use
  Company Number: US-ABBVIE-12P-163-0904683-00

PATIENT
  Age: 38 Year
  Sex: Female
  Weight: 62.65 kg

DRUGS (11)
  1. HUMIRA [Suspect]
     Indication: CROHN^S DISEASE
     Route: 058
     Dates: start: 20090313, end: 20090313
  2. HUMIRA [Suspect]
     Dosage: WEEK 2
     Route: 058
  3. HUMIRA [Suspect]
     Route: 058
     Dates: end: 20090501
  4. HUMIRA [Suspect]
     Route: 058
     Dates: start: 20120215
  5. PHENERGAN [Concomitant]
     Indication: NAUSEA
     Dosage: Q6H PRN
     Dates: start: 200901
  6. SULFASALAZINE [Concomitant]
     Indication: CROHN^S DISEASE
     Dates: start: 2009, end: 201310
  7. SULFASALAZINE [Concomitant]
     Dates: start: 20140226
  8. BENTYL [Concomitant]
     Indication: CROHN^S DISEASE
     Dates: start: 20101104
  9. IMURAN [Concomitant]
     Indication: CROHN^S DISEASE
     Dates: start: 20101104, end: 201312
  10. IMURAN [Concomitant]
     Dates: start: 20140226
  11. ASACOL HD [Concomitant]
     Indication: CROHN^S DISEASE
     Dates: start: 20101123, end: 201101

REACTIONS (1)
  - Systemic lupus erythematosus [Not Recovered/Not Resolved]
